FAERS Safety Report 5266239-0 (Version None)
Quarter: 2007Q1

REPORT INFORMATION
  Report Type: 
  Country: None (occurrence: None)
  Receive Date: 20070315
  Receipt Date: 20070308
  Transmission Date: 20070707
  Serious: Yes (Other)
  Sender: FDA-Public Use
  Company Number: GB-GLAXOSMITHKLINE-B0461340A

PATIENT
  Age: 31 Year
  Sex: Male

DRUGS (1)
  1. PAROXETINE HCL [Suspect]
     Indication: DEPRESSION
     Route: 065

REACTIONS (4)
  - DYSPNOEA [None]
  - EMOTIONAL DISORDER [None]
  - SUICIDAL IDEATION [None]
  - TREMOR [None]
